FAERS Safety Report 17858835 (Version 2)
Quarter: 2020Q2

REPORT INFORMATION
  Report Type: Report from Study
  Country: None (occurrence: US)
  Receive Date: 20200604
  Receipt Date: 20200605
  Transmission Date: 20200714
  Serious: No
  Sender: FDA-Public Use
  Company Number: US-US WORLDMEDS, LLC-USW202003-000475

PATIENT
  Age: 65 Year
  Sex: Male
  Weight: 106.59 kg

DRUGS (16)
  1. APOKYN [Suspect]
     Active Substance: APOMORPHINE HYDROCHLORIDE
     Route: 058
  2. ATORVASTATIN [Concomitant]
     Active Substance: ATORVASTATIN
  3. PROAIR HFA [Concomitant]
     Active Substance: ALBUTEROL SULFATE
     Dosage: UNKNOWN
  4. DIAZEPAM. [Concomitant]
     Active Substance: DIAZEPAM
  5. RYTARY [Concomitant]
     Active Substance: CARBIDOPA\LEVODOPA
  6. VERAPAMIL HCL [Concomitant]
     Active Substance: VERAPAMIL HYDROCHLORIDE
  7. AMANTADINE. [Concomitant]
     Active Substance: AMANTADINE HYDROCHLORIDE
  8. PREVACID [Concomitant]
     Active Substance: LANSOPRAZOLE
     Dosage: UNKNOWN
  9. RYTARY [Concomitant]
     Active Substance: CARBIDOPA\LEVODOPA
  10. QUINAPRIL. [Concomitant]
     Active Substance: QUINAPRIL
  11. APOKYN [Suspect]
     Active Substance: APOMORPHINE HYDROCHLORIDE
     Indication: PARKINSON^S DISEASE
     Route: 058
     Dates: start: 20200305
  12. CELECOXIB. [Concomitant]
     Active Substance: CELECOXIB
  13. RASAGILINE. [Concomitant]
     Active Substance: RASAGILINE
  14. CLONAZEPAM. [Concomitant]
     Active Substance: CLONAZEPAM
  15. PRAMIPEXOLE. [Concomitant]
     Active Substance: PRAMIPEXOLE
  16. TADALAFIL. [Concomitant]
     Active Substance: TADALAFIL

REACTIONS (7)
  - Balance disorder [Unknown]
  - Blood pressure abnormal [Unknown]
  - Blood pressure decreased [Unknown]
  - Injection site nodule [Unknown]
  - Lethargy [Unknown]
  - Somnolence [Unknown]
  - Yawning [Unknown]

NARRATIVE: CASE EVENT DATE: 202003
